FAERS Safety Report 9185117 (Version 1)
Quarter: 2013Q1

REPORT INFORMATION
  Report Type: Report from Study
  Country: IT (occurrence: IT)
  Receive Date: 20130325
  Receipt Date: 20130325
  Transmission Date: 20140127
  Serious: Yes (Death, Hospitalization)
  Sender: FDA-Public Use
  Company Number: IT-ABBOTT-13P-083-1049742-00

PATIENT
  Age: 73 Year
  Sex: Male
  Weight: 78 kg

DRUGS (1)
  1. DUODOPA [Suspect]
     Indication: PARKINSON^S DISEASE
     Dosage: MD 10 (+3) ML?CI 4.3 ML/H?ED 3.5 ML
     Route: 050
     Dates: start: 20091026, end: 20121231

REACTIONS (3)
  - Death [Fatal]
  - Cachexia [Unknown]
  - Hypophagia [Unknown]
